FAERS Safety Report 4381526-6 (Version None)
Quarter: 2004Q2

REPORT INFORMATION
  Report Type: 
  Country: None (occurrence: None)
  Receive Date: 20040621
  Receipt Date: 20040615
  Transmission Date: 20050107
  Serious: Yes (Other)
  Sender: FDA-Public Use
  Company Number: US-MERCK-0406USA01575

PATIENT
  Sex: Female

DRUGS (2)
  1. FOSAMAX [Suspect]
     Indication: OSTEOPOROSIS
     Route: 048
  2. VIOXX [Concomitant]
     Route: 048

REACTIONS (1)
  - PERFORATED ULCER [None]
